FAERS Safety Report 11032039 (Version 1)
Quarter: 2015Q2

REPORT INFORMATION
  Report Type: Spontaneous
  Country: US (occurrence: US)
  Receive Date: 20150415
  Receipt Date: 20150415
  Transmission Date: 20150821
  Serious: Yes (Hospitalization)
  Sender: FDA-Public Use
  Company Number: US-INCYTE CORPORATION-2015IN001538

PATIENT
  Age: 71 Year
  Sex: Male

DRUGS (11)
  1. TRIAMTERENE AND HYDROCHLOROTHIAZIDE [Concomitant]
     Active Substance: HYDROCHLOROTHIAZIDE\TRIAMTERENE
  2. NIASPAN [Concomitant]
     Active Substance: NIACIN
  3. MIDODRINE [Concomitant]
     Active Substance: MIDODRINE
  4. JAKAFI [Suspect]
     Active Substance: RUXOLITINIB
     Dosage: 5 MG, BID
     Route: 048
  5. ATENOLOL. [Concomitant]
     Active Substance: ATENOLOL
  6. JAKAFI [Suspect]
     Active Substance: RUXOLITINIB
     Indication: MYELOFIBROSIS
     Dosage: 5 MG, BID
     Route: 048
     Dates: start: 20130625, end: 201503
  7. FUROSEMIDE. [Concomitant]
     Active Substance: FUROSEMIDE
  8. TRICOR                             /00090101/ [Concomitant]
  9. LIPITOR [Concomitant]
     Active Substance: ATORVASTATIN CALCIUM
  10. TAMSULOSIN [Concomitant]
     Active Substance: TAMSULOSIN
  11. TRAMADOL [Concomitant]
     Active Substance: TRAMADOL

REACTIONS (1)
  - Pneumothorax [Recovered/Resolved]

NARRATIVE: CASE EVENT DATE: 201503
